FAERS Safety Report 7877848-4 (Version None)
Quarter: 2011Q4

REPORT INFORMATION
  Report Type: 
  Country: None (occurrence: None)
  Receive Date: 20111031
  Receipt Date: 20111031
  Transmission Date: 20120403
  Serious: Yes (Other)
  Sender: FDA-Public Use
  Company Number: None

PATIENT
  Age: 75 Year
  Sex: Female

DRUGS (6)
  1. AUGMENTIN '125' [Suspect]
     Indication: PNEUMONIA
     Dosage: 1 TAB
     Route: 048
     Dates: start: 20110525, end: 20110604
  2. CALCIUM CARBONATE-VITAMIN D 500-200 MG- [Concomitant]
     Route: 048
  3. PROZAC [Concomitant]
     Route: 048
  4. VALIUM [Concomitant]
     Route: 048
  5. COLACE [Concomitant]
     Route: 048
  6. FOSAMAX [Concomitant]
     Route: 048

REACTIONS (1)
  - CLOSTRIDIUM DIFFICILE COLITIS [None]
